FAERS Safety Report 5972537-5 (Version None)
Quarter: 2008Q4

REPORT INFORMATION
  Report Type: 
  Country: None (occurrence: None)
  Receive Date: 20081201
  Receipt Date: 20081118
  Transmission Date: 20090506
  Serious: Yes (Disabling, Other)
  Sender: FDA-Public Use
  Company Number: B0546826A

PATIENT
  Age: 51 Year
  Sex: Male

DRUGS (5)
  1. REQUIP [Suspect]
     Indication: PARKINSON'S DISEASE
     Route: 048
     Dates: start: 20080528
  2. AVLOCARDYL [Concomitant]
     Indication: TREMOR
     Dosage: .5TAB THREE TIMES PER DAY
     Route: 048
     Dates: start: 20080528
  3. SEROPLEX [Concomitant]
     Indication: DEPRESSION
     Route: 048
     Dates: start: 20080701
  4. MOTILIUM [Concomitant]
     Indication: NAUSEA
     Route: 048
     Dates: start: 20080528
  5. L-DOPA [Concomitant]
     Indication: PARKINSON'S DISEASE
     Route: 065

REACTIONS (2)
  - HYPERSOMNIA [None]
  - ILL-DEFINED DISORDER [None]
